FAERS Safety Report 7762732-7 (Version None)
Quarter: 2011Q3

REPORT INFORMATION
  Report Type: 
  Country: None (occurrence: None)
  Receive Date: 20110920
  Receipt Date: 20110916
  Transmission Date: 20111222
  Serious: Yes (Other)
  Sender: FDA-Public Use
  Company Number: JP-PFIZER INC-2011221827

PATIENT
  Age: 33 Year
  Sex: Male

DRUGS (1)
  1. VARENICLINE TARTRATE [Suspect]
     Dosage: 1 MG, 1X/DAY
     Route: 048
     Dates: start: 20110721, end: 20110101

REACTIONS (2)
  - ROAD TRAFFIC ACCIDENT [None]
  - FEELING ABNORMAL [None]
